FAERS Safety Report 13932831 (Version 1)
Quarter: 2017Q3

REPORT INFORMATION
  Report Type: Spontaneous
  Country: JP (occurrence: JP)
  Receive Date: 20170904
  Receipt Date: 20170904
  Transmission Date: 20171127
  Serious: Yes (Other)
  Sender: FDA-Public Use
  Company Number: JP-JNJFOC-20170815461

PATIENT
  Age: 82 Year
  Sex: Male

DRUGS (8)
  1. ITRACONAZOLE. [Suspect]
     Active Substance: ITRACONAZOLE
     Indication: KERATITIS FUNGAL
     Route: 048
  2. VORICONAZOLE. [Concomitant]
     Active Substance: VORICONAZOLE
     Indication: KERATITIS FUNGAL
     Route: 048
  3. VORICONAZOLE. [Suspect]
     Active Substance: VORICONAZOLE
     Indication: KERATITIS FUNGAL
     Route: 061
  4. PIMARICIN [Suspect]
     Active Substance: NATAMYCIN
     Indication: KERATITIS FUNGAL
     Route: 061
  5. MICAFUNGIN [Concomitant]
     Active Substance: MICAFUNGIN
     Indication: KERATITIS FUNGAL
     Route: 061
  6. AMPHOTERICIN B. [Suspect]
     Active Substance: AMPHOTERICIN B
     Indication: KERATITIS FUNGAL
     Route: 061
  7. VORICONAZOLE. [Suspect]
     Active Substance: VORICONAZOLE
     Indication: KERATITIS FUNGAL
     Route: 042
  8. MICAFUNGIN [Concomitant]
     Active Substance: MICAFUNGIN
     Indication: KERATITIS FUNGAL
     Route: 042

REACTIONS (4)
  - Corneal disorder [Recovered/Resolved with Sequelae]
  - Toxicity to various agents [Recovered/Resolved]
  - Product use in unapproved indication [Unknown]
  - Off label use [Unknown]
